FAERS Safety Report 8384817-7 (Version None)
Quarter: 2012Q2

REPORT INFORMATION
  Report Type: 
  Country: None (occurrence: None)
  Receive Date: 20120524
  Receipt Date: 20120516
  Transmission Date: 20120825
  Serious: Yes (Hospitalization)
  Sender: FDA-Public Use
  Company Number: US-VERTEX PHARMACEUTICALS INC.-AE-2012-007282

PATIENT
  Sex: Female

DRUGS (3)
  1. RIBAVIRIN [Concomitant]
     Indication: HEPATITIS C
     Dates: start: 20120328, end: 20120515
  2. INCIVEK [Suspect]
     Indication: HEPATITIS C
     Route: 048
     Dates: start: 20120328, end: 20120515
  3. PEGASYS [Concomitant]
     Indication: HEPATITIS C
     Dates: start: 20120328, end: 20120515

REACTIONS (5)
  - DEHYDRATION [None]
  - SYNCOPE [None]
  - FALL [None]
  - ANAEMIA [None]
  - OEDEMA PERIPHERAL [None]
